FAERS Safety Report 6830537-7 (Version None)
Quarter: 2010Q3

REPORT INFORMATION
  Report Type: 
  Country: None (occurrence: None)
  Receive Date: 20100712
  Receipt Date: 20100630
  Transmission Date: 20110219
  Serious: Yes (Other)
  Sender: FDA-Public Use
  Company Number: BR-RANBAXY-2010R5-35299

PATIENT

DRUGS (2)
  1. CEFUROXIME AXETIL [Suspect]
     Indication: ACUTE SINUSITIS
     Dosage: 500 MG, BID
     Route: 048
     Dates: start: 20100629
  2. LACTULONA [Suspect]
     Indication: PRODUCT USED FOR UNKNOWN INDICATION
     Dosage: UNK, ONE DOSE
     Route: 065

REACTIONS (2)
  - EPISTAXIS [None]
  - MOUTH HAEMORRHAGE [None]
